FAERS Safety Report 24858976 (Version 5)
Quarter: 2025Q3

REPORT INFORMATION
  Report Type: Spontaneous
  Country: US (occurrence: US)
  Receive Date: 20250118
  Receipt Date: 20250908
  Transmission Date: 20251021
  Serious: Yes (Disabling, Other)
  Sender: AMGEN
  Company Number: US-AMGEN-USASP2025006379

PATIENT
  Age: 53 Year
  Sex: Male

DRUGS (49)
  1. TEPEZZA [Suspect]
     Active Substance: TEPROTUMUMAB-TRBW
     Indication: Graves^ disease
     Dosage: 1000 MILLIGRAM, Q3WK
     Route: 040
     Dates: start: 20211123, end: 20211123
  2. TEPEZZA [Suspect]
     Active Substance: TEPROTUMUMAB-TRBW
     Indication: Endocrine ophthalmopathy
     Dosage: 2000 MILLIGRAM, Q3WK
     Route: 040
     Dates: start: 20211215, end: 20211215
  3. TEPEZZA [Suspect]
     Active Substance: TEPROTUMUMAB-TRBW
     Indication: Toxic goitre
     Dosage: 2000 MILLIGRAM, Q3WK
     Route: 040
     Dates: start: 20220105, end: 20220105
  4. TEPEZZA [Suspect]
     Active Substance: TEPROTUMUMAB-TRBW
     Dosage: 2000 MILLIGRAM, Q3WK
     Route: 040
     Dates: start: 20220126, end: 20220126
  5. TEPEZZA [Suspect]
     Active Substance: TEPROTUMUMAB-TRBW
     Dosage: 2000 MILLIGRAM, Q3WK
     Route: 040
     Dates: start: 20220216, end: 20220216
  6. TEPEZZA [Suspect]
     Active Substance: TEPROTUMUMAB-TRBW
     Dosage: 2000 MILLIGRAM, Q3WK
     Route: 040
     Dates: start: 20220309, end: 20220309
  7. TEPEZZA [Suspect]
     Active Substance: TEPROTUMUMAB-TRBW
     Dosage: 2000 MILLIGRAM, Q3WK
     Route: 040
     Dates: start: 20220330, end: 20220330
  8. TEPEZZA [Suspect]
     Active Substance: TEPROTUMUMAB-TRBW
     Dosage: 2000 MILLIGRAM, Q3WK
     Route: 040
     Dates: start: 20220420, end: 20220420
  9. PREDNISONE [Suspect]
     Active Substance: PREDNISONE
     Indication: Ear discomfort
     Route: 065
     Dates: start: 201801
  10. PREDNISONE [Suspect]
     Active Substance: PREDNISONE
     Indication: Upper-airway cough syndrome
  11. PREDNISONE [Suspect]
     Active Substance: PREDNISONE
     Indication: Facial discomfort
  12. PREDNISONE [Suspect]
     Active Substance: PREDNISONE
     Indication: Nasal congestion
  13. PREDNISONE [Suspect]
     Active Substance: PREDNISONE
     Indication: Rhinitis
  14. BENADRYL [Concomitant]
     Active Substance: DIPHENHYDRAMINE HYDROCHLORIDE
     Dosage: 50 MILLIGRAM, QD
     Route: 065
  15. SOLU-MEDROL [Concomitant]
     Active Substance: METHYLPREDNISOLONE SODIUM SUCCINATE
     Dosage: 125 MILLIGRAM, QD
     Route: 065
  16. PEPCID [Concomitant]
     Active Substance: FAMOTIDINE
     Dosage: 20 MILLIGRAM, QD
     Route: 065
  17. ALBUTEROL [Concomitant]
     Active Substance: ALBUTEROL
     Dosage: 2.5 MILLIGRAM, QD (2.5 MG/3 ML) (0.083 PERCENT)
     Route: 065
  18. EPIPEN [Concomitant]
     Active Substance: EPINEPHRINE
     Dosage: 0.3 MILLIGRAM (0.3 MG/0.3 ML)
     Route: 065
  19. SODIUM CHLORIDE [Concomitant]
     Active Substance: SODIUM CHLORIDE
     Dosage: 0.9 PERCENT, QD
     Route: 065
  20. AMLODIPINE BESYLATE [Concomitant]
     Active Substance: AMLODIPINE BESYLATE
     Dosage: 5 MILLIGRAM, QD (EVERY DAY)
     Route: 048
  21. LATANOPROST [Concomitant]
     Active Substance: LATANOPROST
     Dosage: 0.005 PERCENT (1 GTTS EVERY NIGHT AT BEDTIME)
     Route: 047
  22. LEVOTHYROXINE SODIUM [Concomitant]
     Active Substance: LEVOTHYROXINE SODIUM
     Dosage: 75 MICROGRAM, QD (EVERYDAY)
     Route: 048
  23. LEVOTHYROXINE SODIUM [Concomitant]
     Active Substance: LEVOTHYROXINE SODIUM
     Dosage: 88 MICROGRAM, QD
     Route: 048
  24. OXYCODONE AND ACETAMINOPHEN [Concomitant]
     Active Substance: ACETAMINOPHEN\OXYCODONE HYDROCHLORIDE
     Dosage: 335 MILLIGRAM, Q12H (10-325 MG)
     Route: 048
  25. OXYCODONE AND ACETAMINOPHEN [Concomitant]
     Active Substance: ACETAMINOPHEN\OXYCODONE HYDROCHLORIDE
     Dosage: 335 MILLIGRAM, Q6H (10-325 MG)
     Route: 048
  26. REFRESH CLASSIC [Concomitant]
     Active Substance: POLYVINYL ALCOHOL\POVIDONE
     Route: 065
  27. SIMBRINZA [Concomitant]
     Active Substance: BRIMONIDINE TARTRATE\BRINZOLAMIDE
     Dosage: UNK, TID(1 GTTS, 1- 0.2 PERCENT)
     Route: 047
  28. SIMBRINZA [Concomitant]
     Active Substance: BRIMONIDINE TARTRATE\BRINZOLAMIDE
     Dosage: UNK, BID (1 GTTS, 1- 0.2 PERCENT)
     Route: 047
  29. SIMVASTATIN [Concomitant]
     Active Substance: SIMVASTATIN
     Dosage: 40 MILLIGRAM, QD (EVERYDAY AT BEDTIME)
     Route: 048
  30. XIIDRA [Concomitant]
     Active Substance: LIFITEGRAST
     Dosage: 5 PERCENT, BID (1 GTT)
     Route: 047
  31. TRAVATAN [Concomitant]
     Active Substance: TRAVOPROST
     Route: 065
  32. AZELASTINE [Concomitant]
     Active Substance: AZELASTINE
     Dosage: UNK, BID (137 MCG/INH SPRAY 2 SPRAYS)
     Route: 045
     Dates: start: 20190904, end: 20230831
  33. FAMCICLOVIR [Concomitant]
     Active Substance: FAMCICLOVIR
     Dosage: 500 MILLIGRAM, Q8H
     Route: 048
  34. LYRICA [Concomitant]
     Active Substance: PREGABALIN
     Dosage: 25 MILLIGRAM, TID
     Route: 048
  35. OXYCODONE [Concomitant]
     Active Substance: OXYCODONE
     Indication: Back disorder
     Dosage: 10 MILLIGRAM, Q12H
     Route: 048
  36. RESTASIS [Concomitant]
     Active Substance: CYCLOSPORINE
     Route: 065
  37. AMLODIPINE [Concomitant]
     Active Substance: AMLODIPINE BESYLATE
     Dosage: 5 MILLIGRAM, QD
     Route: 048
  38. ZITHROMAX [Concomitant]
     Active Substance: AZITHROMYCIN DIHYDRATE
     Dosage: 250 MILLIGRAM, QD
     Route: 048
     Dates: start: 20180112, end: 20180531
  39. LEVOTHYROXINE [Concomitant]
     Active Substance: LEVOTHYROXINE
     Route: 065
  40. ALPHAGAN P [Concomitant]
     Active Substance: BRIMONIDINE TARTRATE
     Route: 065
  41. TRAVATAN Z [Concomitant]
     Active Substance: TRAVOPROST
     Route: 065
  42. DORZOLAMIDE [Concomitant]
     Active Substance: DORZOLAMIDE
     Route: 065
  43. BACTRIM DS [Concomitant]
     Active Substance: SULFAMETHOXAZOLE\TRIMETHOPRIM
     Dosage: 960 MILLIGRAM, Q12H
     Route: 048
     Dates: start: 20180322, end: 20180531
  44. CETIRIZINE [Concomitant]
     Active Substance: CETIRIZINE HYDROCHLORIDE
     Dosage: 10 MILLIGRAM, QD
     Route: 048
     Dates: start: 20181114
  45. AUGMENTIN [Concomitant]
     Active Substance: AMOXICILLIN\CLAVULANATE POTASSIUM
     Dosage: 1000 MILLIGRAM, BID (875 MG-125 MG)
     Route: 048
     Dates: start: 20210408, end: 20240412
  46. BRIMONIDINE TARTRATE\BRINZOLAMIDE [Concomitant]
     Active Substance: BRIMONIDINE TARTRATE\BRINZOLAMIDE
     Route: 047
     Dates: end: 20240412
  47. PREGABALIN [Concomitant]
     Active Substance: PREGABALIN
     Dosage: 50 MILLIGRAM, BID
     Route: 048
     Dates: start: 20200207, end: 20240412
  48. IPRATROPIUM [Concomitant]
     Active Substance: IPRATROPIUM
     Dosage: UNK UNK, BID (ADMINISTER 2 SPRAYS)
     Route: 045
     Dates: start: 20200513, end: 20201214
  49. AMLODIPINE AND ATORVASTATIN [Concomitant]
     Active Substance: AMLODIPINE BESYLATE\ATORVASTATIN CALCIUM
     Route: 048
     Dates: end: 20190626

REACTIONS (64)
  - Endocrine ophthalmopathy [Unknown]
  - Graves^ disease [Unknown]
  - Deafness neurosensory [Unknown]
  - Idiopathic angioedema [Unknown]
  - Type 2 diabetes mellitus [Unknown]
  - Pain [Unknown]
  - Emotional distress [Unknown]
  - Anxiety [Unknown]
  - Quality of life decreased [Unknown]
  - Discomfort [Unknown]
  - Tinnitus [Unknown]
  - Herpes zoster [Recovering/Resolving]
  - Dizziness [Recovering/Resolving]
  - Irritable bowel syndrome [Not Recovered/Not Resolved]
  - Neck pain [Unknown]
  - Sciatica [Unknown]
  - Blood pressure systolic increased [Unknown]
  - High density lipoprotein decreased [Unknown]
  - Low density lipoprotein increased [Unknown]
  - Thyroxine free decreased [Unknown]
  - Blood potassium increased [Unknown]
  - Swelling [Unknown]
  - Anion gap decreased [Unknown]
  - Peyronie^s disease [Unknown]
  - Vertigo [Unknown]
  - Blood sodium increased [Unknown]
  - Blood potassium increased [Unknown]
  - Chronic sinusitis [Unknown]
  - Obesity [Recovered/Resolved]
  - Rhinitis allergic [Recovered/Resolved]
  - Product use complaint [Unknown]
  - Pyrexia [Unknown]
  - Oropharyngeal pain [Unknown]
  - Cough [Unknown]
  - SARS-CoV-2 test positive [Unknown]
  - Headache [Recovered/Resolved]
  - Asthenia [Unknown]
  - Ear discomfort [Unknown]
  - Nasal congestion [Unknown]
  - Facial pain [Unknown]
  - Facial discomfort [Unknown]
  - Upper-airway cough syndrome [Unknown]
  - Nasal septum deviation [Unknown]
  - Nasal turbinate hypertrophy [Unknown]
  - Mucosal hypertrophy [Unknown]
  - Constipation [Unknown]
  - Non-high-density lipoprotein cholesterol increased [Unknown]
  - Sneezing [Unknown]
  - Nasal discharge discolouration [Unknown]
  - Middle insomnia [Unknown]
  - Frustration tolerance decreased [Unknown]
  - Irritability [Unknown]
  - Restlessness [Unknown]
  - Chronic spontaneous urticaria [Unknown]
  - Abdominal pain [Unknown]
  - Dysphagia [Unknown]
  - Larynx irritation [Unknown]
  - Hypoaesthesia oral [Unknown]
  - Epistaxis [Unknown]
  - Heart rate increased [Unknown]
  - Eustachian tube dysfunction [Unknown]
  - Pruritus [Unknown]
  - Formication [Unknown]
  - Paraesthesia [Unknown]

NARRATIVE: CASE EVENT DATE: 20180122
